FAERS Safety Report 5176924-7 (Version None)
Quarter: 2006Q4

REPORT INFORMATION
  Report Type: 
  Country: None (occurrence: None)
  Receive Date: 20061207
  Receipt Date: 20061127
  Transmission Date: 20070319
  Serious: Yes (Other)
  Sender: FDA-Public Use
  Company Number: 2006EN000040

PATIENT
  Age: 48 Year
  Sex: Female
  Weight: 77.1115 kg

DRUGS (5)
  1. OPANA [Suspect]
     Indication: BREAKTHROUGH PAIN
     Dosage: 10 MG PRN
     Dates: start: 20061113, end: 20061122
  2. OPANA ER [Suspect]
     Indication: PAIN
     Dosage: 40 MG BID
     Dates: start: 20061113, end: 20061122
  3. METHADONE HCL [Concomitant]
  4. RESTORIL [Concomitant]
  5. ATIVAN [Concomitant]

REACTIONS (4)
  - CONVULSION [None]
  - HALLUCINATION [None]
  - INSOMNIA [None]
  - NIGHTMARE [None]
